FAERS Safety Report 4938155-2 (Version None)
Quarter: 2006Q1

REPORT INFORMATION
  Report Type: 
  Country: None (occurrence: None)
  Receive Date: 20060309
  Receipt Date: 20051219
  Transmission Date: 20060701
  Serious: No
  Sender: FDA-Public Use
  Company Number: US-BRISTOL-MYERS SQUIBB COMPANY-13220942

PATIENT
  Age: 39 Year
  Sex: Female

DRUGS (2)
  1. VAGISTAT-1 [Suspect]
     Indication: GENITAL PRURITUS FEMALE
     Route: 067
     Dates: start: 20051215, end: 20051215
  2. VAGISTAT-1 [Suspect]
     Indication: VAGINAL DISCHARGE
     Route: 067
     Dates: start: 20051215, end: 20051215

REACTIONS (1)
  - DRUG INEFFECTIVE [None]
